FAERS Safety Report 5312958-7 (Version None)
Quarter: 2007Q2

REPORT INFORMATION
  Report Type: 
  Country: None (occurrence: None)
  Receive Date: 20070430
  Receipt Date: 20070424
  Transmission Date: 20071010
  Serious: Yes (Hospitalization, Other)
  Sender: FDA-Public Use
  Company Number: US-AMGEN-US210802

PATIENT
  Sex: Female
  Weight: 84.4 kg

DRUGS (2)
  1. ENBREL [Suspect]
     Indication: RHEUMATOID ARTHRITIS
     Route: 058
     Dates: start: 20050720, end: 20061222
  2. PREDNISONE TAB [Concomitant]
     Dates: start: 20050720

REACTIONS (1)
  - APLASTIC ANAEMIA [None]
